FAERS Safety Report 18569340 (Version 2)
Quarter: 2022Q3

REPORT INFORMATION
  Report Type: Spontaneous
  Country: CA (occurrence: CA)
  Receive Date: 20201202
  Receipt Date: 20220711
  Transmission Date: 20221027
  Serious: Yes (Other)
  Sender: FDA-Public Use
  Company Number: CA-GLAXOSMITHKLINE-CA2020AMR234534

PATIENT

DRUGS (1)
  1. BENLYSTA [Suspect]
     Active Substance: BELIMUMAB
     Indication: Systemic lupus erythematosus
     Dosage: 1 DF, Z (EVERY 2 WEEKS INJECTION)
     Route: 058
     Dates: start: 202008

REACTIONS (7)
  - Systemic lupus erythematosus [Unknown]
  - Suspected COVID-19 [Unknown]
  - Cough [Unknown]
  - Fatigue [Unknown]
  - Pyrexia [Unknown]
  - Discomfort [Unknown]
  - Product dose omission issue [Unknown]
